FAERS Safety Report 12257153 (Version 1)
Quarter: 2016Q2

REPORT INFORMATION
  Report Type: Spontaneous
  Country: US (occurrence: None)
  Receive Date: 20160411
  Receipt Date: 20160411
  Transmission Date: 20160815
  Serious: Yes (Other)
  Sender: FDA-Public Use
  Company Number: None

PATIENT
  Age: 31 Year
  Sex: Male
  Weight: 59 kg

DRUGS (2)
  1. METOCLOPRAMIDE. [Suspect]
     Active Substance: METOCLOPRAMIDE
     Indication: GASTROINTESTINAL DISORDER
  2. TEDIZOLID, [Suspect]
     Active Substance: TEDIZOLID
     Indication: MYCOBACTERIUM AVIUM COMPLEX INFECTION
     Route: 048
     Dates: start: 20151105, end: 20151223

REACTIONS (6)
  - Condition aggravated [None]
  - Neuropathy peripheral [None]
  - Dyspnoea [None]
  - Diarrhoea [None]
  - Myalgia [None]
  - Nausea [None]

NARRATIVE: CASE EVENT DATE: 20151125
